FAERS Safety Report 9270155 (Version 1)
Quarter: 2013Q2

REPORT INFORMATION
  Report Type: Spontaneous
  Country: US (occurrence: US)
  Receive Date: 20130503
  Receipt Date: 20130503
  Transmission Date: 20140414
  Serious: Yes (Other)
  Sender: FDA-Public Use
  Company Number: US-JNJFOC-20130416164

PATIENT
  Sex: Female

DRUGS (2)
  1. GALANTAMINE [Suspect]
     Indication: AMNESIA
     Route: 048
  2. GALANTAMINE [Suspect]
     Indication: AMNESIA
     Route: 048

REACTIONS (6)
  - Hypothyroidism [Not Recovered/Not Resolved]
  - Hypoglycaemia [Not Recovered/Not Resolved]
  - Nerve injury [Not Recovered/Not Resolved]
  - Blood lead increased [Unknown]
  - Aphonia [Not Recovered/Not Resolved]
  - Blood aluminium increased [Recovered/Resolved]
